FAERS Safety Report 10143659 (Version 1)
Quarter: 2014Q2

REPORT INFORMATION
  Report Type: Spontaneous
  Country: US (occurrence: US)
  Receive Date: 20140430
  Receipt Date: 20140430
  Transmission Date: 20141212
  Serious: No
  Sender: FDA-Public Use
  Company Number: US-PFIZER INC-2014116741

PATIENT
  Sex: Female

DRUGS (2)
  1. CELEBREX [Suspect]
     Dosage: 200 MG, DAILY
     Dates: start: 201404, end: 201404
  2. CELEBREX [Suspect]
     Dosage: 325 MG, 2X/DAY
     Dates: start: 201404

REACTIONS (2)
  - Abdominal pain [Unknown]
  - Nausea [Unknown]
